FAERS Safety Report 18240413 (Version 1)
Quarter: 2020Q3

REPORT INFORMATION
  Report Type: Other
  Country: PT (occurrence: PT)
  Receive Date: 20200908
  Receipt Date: 20200908
  Transmission Date: 20201103
  Serious: Yes (Other)
  Sender: FDA-Public Use
  Company Number: PT-FDC LIMITED-2089474

PATIENT
  Age: 63 Year
  Sex: Female

DRUGS (2)
  1. NORFLOXACIN [Suspect]
     Active Substance: NORFLOXACIN
     Route: 065
  2. CIPROFLOXACIN. [Suspect]
     Active Substance: CIPROFLOXACIN
     Indication: SKIN TEST
     Route: 065

REACTIONS (2)
  - Fixed eruption [Unknown]
  - Therapeutic product cross-reactivity [Unknown]
